FAERS Safety Report 5463849-2 (Version None)
Quarter: 2007Q3

REPORT INFORMATION
  Report Type: 
  Country: None (occurrence: None)
  Receive Date: 20070921
  Receipt Date: 20070912
  Transmission Date: 20080115
  Serious: Yes (Hospitalization)
  Sender: FDA-Public Use
  Company Number: JP-MERCK-0709USA00904

PATIENT
  Age: 43 Year
  Sex: Female
  Weight: 28 kg

DRUGS (10)
  1. SINGULAIR [Suspect]
     Indication: ASTHMA
     Route: 048
     Dates: start: 20070720, end: 20070805
  2. PREDONINE [Suspect]
     Indication: ASTHMA
     Route: 048
     Dates: start: 20070801, end: 20070803
  3. PREDONINE [Suspect]
     Route: 048
     Dates: start: 20070804, end: 20070806
  4. PREDONINE [Suspect]
     Route: 048
     Dates: start: 20070807, end: 20070807
  5. THEOLONG [Concomitant]
     Indication: ASTHMA
     Route: 048
     Dates: start: 20070724
  6. MESTRANOL AND NORETHYNODREL [Concomitant]
     Indication: ENDOMETRIOSIS
     Route: 048
     Dates: start: 20060101
  7. ZOLPIDEM TARTRATE [Concomitant]
     Indication: INSOMNIA
     Route: 048
     Dates: start: 20070723
  8. LENDORMIN [Concomitant]
     Indication: INSOMNIA
     Route: 048
     Dates: start: 20070723
  9. SALMETEROL XINAFOATE [Concomitant]
     Indication: ASTHMA
     Dates: start: 20070723
  10. FLUTIDE [Concomitant]
     Indication: ASTHMA
     Dates: start: 20070723

REACTIONS (4)
  - ALLERGIC GRANULOMATOUS ANGIITIS [None]
  - HYPOAESTHESIA [None]
  - MONONEUROPATHY MULTIPLEX [None]
  - PYREXIA [None]
